FAERS Safety Report 4353666-9 (Version None)
Quarter: 2004Q2

REPORT INFORMATION
  Report Type: 
  Country: None (occurrence: None)
  Receive Date: 20040430
  Receipt Date: 20040419
  Transmission Date: 20050107
  Serious: Yes (Death, Hospitalization)
  Sender: FDA-Public Use
  Company Number: JP-JNJFOC-20040104293

PATIENT
  Age: 72 Year
  Sex: Female
  Weight: 44 kg

DRUGS (12)
  1. REMICADE [Suspect]
     Indication: RHEUMATOID ARTHRITIS
     Dosage: 135 MG, 1 IN 1 AS NECESSARY, INTRAVENOUS DRIP; SEE IMAGE
     Route: 041
     Dates: start: 20031002, end: 20031002
  2. REMICADE [Suspect]
     Indication: RHEUMATOID ARTHRITIS
     Dosage: 135 MG, 1 IN 1 AS NECESSARY, INTRAVENOUS DRIP; SEE IMAGE
     Route: 041
     Dates: start: 20031016, end: 20031016
  3. REMICADE [Suspect]
     Indication: RHEUMATOID ARTHRITIS
     Dosage: 135 MG, 1 IN 1 AS NECESSARY, INTRAVENOUS DRIP; SEE IMAGE
     Route: 041
     Dates: start: 20031115, end: 20031115
  4. REMICADE [Suspect]
     Indication: RHEUMATOID ARTHRITIS
     Dosage: 135 MG, 1 IN 1 AS NECESSARY, INTRAVENOUS DRIP; SEE IMAGE
     Route: 041
     Dates: start: 20040108, end: 20040108
  5. RHEUMATREX (METHOTREXAT SODIUM) [Suspect]
     Indication: RHEUMATOID ARTHRITIS
     Dosage: 6.25 MG, IN 1 WEEK, ORAL
     Route: 048
     Dates: start: 20000426, end: 20010724
  6. RHEUMATREX (METHOTREXAT SODIUM) [Suspect]
     Indication: RHEUMATOID ARTHRITIS
     Dosage: 6.25 MG, IN 1 WEEK, ORAL
     Route: 048
     Dates: start: 20010725, end: 20021110
  7. RHEUMATREX (METHOTREXAT SODIUM) [Suspect]
     Indication: RHEUMATOID ARTHRITIS
     Dosage: 6.25 MG, IN 1 WEEK, ORAL
     Route: 048
     Dates: start: 20021110, end: 20030522
  8. RHEUMATREX (METHOTREXAT SODIUM) [Suspect]
     Indication: RHEUMATOID ARTHRITIS
     Dosage: 6.25 MG, IN 1 WEEK, ORAL
     Route: 048
     Dates: start: 20030918, end: 20040119
  9. INDOMETHACIN [Suspect]
     Indication: RHEUMATOID ARTHRITIS
     Dosage: 50 MG, IN 1 DAY, ORAL
     Route: 048
     Dates: start: 20000426
  10. PREDNISOLONE [Concomitant]
  11. FOLIAMIN (TABLETS) FOLIC ACID [Concomitant]
  12. LANSOPRAZOLE [Concomitant]

REACTIONS (2)
  - DIFFUSE ALVEOLAR DAMAGE [None]
  - INTERSTITIAL LUNG DISEASE [None]
